FAERS Safety Report 15706633 (Version 3)
Quarter: 2018Q4

REPORT INFORMATION
  Report Type: Spontaneous
  Country: TR (occurrence: TR)
  Receive Date: 20181210
  Receipt Date: 20181225
  Transmission Date: 20190205
  Serious: Yes (Other)
  Sender: FDA-Public Use
  Company Number: PHHY2018TR178715

PATIENT
  Age: 43 Year
  Sex: Male

DRUGS (1)
  1. SANDIMMUN NEORAL [Suspect]
     Active Substance: CYCLOSPORINE
     Indication: PSORIASIS
     Dosage: 300 MG, UNK (150 MG IN MORNING AND 150  IN EVENING)
     Route: 065

REACTIONS (3)
  - Product supply issue [Recovered/Resolved]
  - Psoriasis [Recovered/Resolved]
  - Pain [Recovered/Resolved]
